FAERS Safety Report 7304715-7 (Version None)
Quarter: 2011Q1

REPORT INFORMATION
  Report Type: 
  Country: None (occurrence: None)
  Receive Date: 20110222
  Receipt Date: 20110215
  Transmission Date: 20110831
  Serious: No
  Sender: FDA-Public Use
  Company Number: US-PFIZER INC-2011015016

PATIENT
  Sex: Male
  Weight: 118 kg

DRUGS (14)
  1. GABAPENTIN [Suspect]
     Indication: NEURALGIA
     Dosage: 200 MG, 3X/DAY
     Dates: start: 20110113, end: 20110120
  2. FISH OIL [Concomitant]
  3. NIACIN [Concomitant]
  4. VITAMIN D [Concomitant]
  5. FINASTERIDE [Concomitant]
     Dosage: 5 MG, UNK
  6. LIPITOR [Concomitant]
     Dosage: 10 MG, UNK
  7. METFORMIN [Concomitant]
     Dosage: 500 MG, UNK
  8. SINEMET [Concomitant]
     Dosage: 25/100
  9. ASA [Concomitant]
  10. GABAPENTIN [Suspect]
     Dosage: 200 MG, 3X/DAY
     Route: 048
     Dates: start: 20110113, end: 20110120
  11. COMTAN [Concomitant]
     Dosage: 200 MG, UNK
  12. BROMOCRIPTINE [Concomitant]
     Dosage: 2.5 MG, UNK
  13. LISINOPRIL [Concomitant]
     Dosage: 2.5 MG, UNK
  14. VITAMIN E [Concomitant]

REACTIONS (2)
  - DIZZINESS [None]
  - FALL [None]
